FAERS Safety Report 6258245-4 (Version None)
Quarter: 2009Q3

REPORT INFORMATION
  Report Type: 
  Country: None (occurrence: None)
  Receive Date: 20090707
  Receipt Date: 20090701
  Transmission Date: 20100115
  Serious: Yes (Hospitalization)
  Sender: FDA-Public Use
  Company Number: FR-BRISTOL-MYERS SQUIBB COMPANY-14688923

PATIENT
  Age: 59 Year
  Sex: Male

DRUGS (11)
  1. SUSTIVA [Suspect]
     Indication: HIV TEST POSITIVE
     Dates: start: 20071018, end: 20081108
  2. TRUVADA [Suspect]
     Indication: HIV TEST POSITIVE
     Dates: start: 20071018, end: 20081108
  3. MOPRAL [Suspect]
  4. LASIX [Concomitant]
  5. AVLOCARDYL [Concomitant]
  6. DUPHALAC [Concomitant]
  7. KEPPRA [Concomitant]
  8. COVERSYL NOVUM [Concomitant]
  9. GLUCOR [Concomitant]
  10. RISORDAN [Concomitant]
  11. TAHOR [Concomitant]

REACTIONS (5)
  - ANAEMIA [None]
  - CIRRHOSIS ALCOHOLIC [None]
  - HEPATIC ENCEPHALOPATHY [None]
  - RENAL FAILURE [None]
  - THROMBOCYTOPENIA [None]
